FAERS Safety Report 12550387 (Version 1)
Quarter: 2016Q3

REPORT INFORMATION
  Report Type: Spontaneous
  Country: US (occurrence: US)
  Receive Date: 20160712
  Receipt Date: 20160712
  Transmission Date: 20161109
  Serious: No
  Sender: FDA-Public Use
  Company Number: US-UNIQUE PHARMACEUTICAL LABORATORIES-2015RIS00109

PATIENT
  Age: 76 Year
  Sex: Female
  Weight: 63.95 kg

DRUGS (9)
  1. DICLOFENAC SODIUM DELAYED-RELEASE TABLETS USP 75MG [Suspect]
     Active Substance: DICLOFENAC SODIUM
     Indication: POST PROCEDURAL INFLAMMATION
     Dosage: 75 MG, ONCE
     Route: 048
     Dates: start: 20150708, end: 20150708
  2. VIVELLE-DOT PATCH [Concomitant]
     Route: 062
  3. NATURE MADE MULTIVITAMIN 50+ [Concomitant]
  4. VITAMIN D [Concomitant]
     Active Substance: CHOLECALCIFEROL
     Dosage: 5000 U, UNK
  5. LACTAID [Concomitant]
     Active Substance: LACTASE
     Dosage: UNK, AS NEEDED
  6. KLONOPIN [Concomitant]
     Active Substance: CLONAZEPAM
     Dosage: 2 MG, UNK
  7. OMEGA 3 [Concomitant]
     Active Substance: OMEGA-3 FATTY ACIDS
  8. LEVOTHYROXINE. [Concomitant]
     Active Substance: LEVOTHYROXINE
  9. KYODOLPHILUS [Concomitant]

REACTIONS (7)
  - Tinnitus [Recovered/Resolved]
  - Headache [Recovered/Resolved]
  - Sensory disturbance [Recovered/Resolved]
  - Dyspepsia [Not Recovered/Not Resolved]
  - Toothache [Recovered/Resolved]
  - Paraesthesia [Recovered/Resolved]
  - Limb discomfort [Not Recovered/Not Resolved]

NARRATIVE: CASE EVENT DATE: 20150709
